FAERS Safety Report 18177625 (Version 1)
Quarter: 2020Q3

REPORT INFORMATION
  Report Type: Spontaneous
  Country: US (occurrence: US)
  Receive Date: 20200820
  Receipt Date: 20200820
  Transmission Date: 20201103
  Serious: Yes (Life-Threatening, Hospitalization)
  Sender: FDA-Public Use
  Company Number: US-MYLANLABS-2020M1072607

PATIENT
  Age: 41 Year
  Sex: Female

DRUGS (12)
  1. FUROSEMIDE. [Suspect]
     Active Substance: FUROSEMIDE
     Indication: ACUTE RESPIRATORY DISTRESS SYNDROME
     Dosage: 40 MILLIGRAM ADMINISTERED A SINGLE DOSE
     Route: 042
  2. SEVOFLURANE. [Suspect]
     Active Substance: SEVOFLURANE
     Indication: ENDOTRACHEAL INTUBATION
     Route: 065
  3. CEFTRIAXONE. [Suspect]
     Active Substance: CEFTRIAXONE
     Indication: PNEUMONIA
     Route: 065
  4. SUCCINYLCHOLINE                    /00057701/ [Suspect]
     Active Substance: SUCCINYLCHOLINE
     Indication: ENDOTRACHEAL INTUBATION
     Route: 065
  5. PHENYLEPHRINE [Suspect]
     Active Substance: PHENYLEPHRINE HYDROCHLORIDE
     Indication: CAESAREAN SECTION
     Route: 065
  6. DEXAMETHASONE. [Suspect]
     Active Substance: DEXAMETHASONE
     Indication: ACUTE RESPIRATORY DISTRESS SYNDROME
     Route: 042
  7. BICARBONATE [Suspect]
     Active Substance: SODIUM BICARBONATE
     Indication: CAESAREAN SECTION
     Route: 042
  8. MIDAZOLAM. [Suspect]
     Active Substance: MIDAZOLAM
     Indication: SEDATIVE THERAPY
     Dosage: INFUSION
  9. OXYTOCIN. [Suspect]
     Active Substance: OXYTOCIN
     Indication: CAESAREAN SECTION
     Route: 065
  10. ROCURONIUM [Suspect]
     Active Substance: ROCURONIUM BROMIDE
     Indication: ENDOTRACHEAL INTUBATION
     Route: 065
  11. AZITHROMYCIN ANHYDROUS. [Suspect]
     Active Substance: AZITHROMYCIN ANHYDROUS
     Indication: PNEUMONIA
     Route: 065
  12. FENTANYL. [Suspect]
     Active Substance: FENTANYL
     Indication: SEDATIVE THERAPY
     Dosage: INFUSION

REACTIONS (2)
  - Drug ineffective [Unknown]
  - Maternal exposure during pregnancy [Recovered/Resolved]
